FAERS Safety Report 18944836 (Version 1)
Quarter: 2021Q1

REPORT INFORMATION
  Report Type: Spontaneous
  Country: US (occurrence: US)
  Receive Date: 20210225
  Receipt Date: 20210225
  Transmission Date: 20210420
  Serious: Yes (Hospitalization)
  Sender: FDA-Public Use
  Company Number: None

PATIENT
  Age: 43 Year
  Sex: Female
  Weight: 93.44 kg

DRUGS (1)
  1. NITROFURANTOIN. [Suspect]
     Active Substance: NITROFURANTOIN
     Indication: URINARY TRACT INFECTION
     Dosage: ?          QUANTITY:1 DF DOSAGE FORM;?
     Route: 048
     Dates: start: 20210112, end: 20210202

REACTIONS (13)
  - Pulmonary oedema [None]
  - Pleural effusion [None]
  - Tachypnoea [None]
  - Procalcitonin increased [None]
  - Lung infiltration [None]
  - Dysuria [None]
  - Pyrexia [None]
  - Dyspnoea [None]
  - Tachycardia [None]
  - White blood cell count increased [None]
  - Cough [None]
  - Blood lactic acid increased [None]
  - Toxicity to various agents [None]

NARRATIVE: CASE EVENT DATE: 20210203
